FAERS Safety Report 13030240 (Version 1)
Quarter: 2016Q4

REPORT INFORMATION
  Report Type: Spontaneous
  Country: FR (occurrence: FR)
  Receive Date: 20161215
  Receipt Date: 20161215
  Transmission Date: 20170207
  Serious: Yes (Congenital Anomaly, Other)
  Sender: FDA-Public Use
  Company Number: FR-009507513-1612FRA004888

PATIENT
  Sex: Female
  Weight: 2.3 kg

DRUGS (8)
  1. ISENTRESS [Suspect]
     Active Substance: RALTEGRAVIR POTASSIUM
     Indication: HIV INFECTION
     Dosage: UNK
     Route: 064
  2. SPECIAFOLDINE [Concomitant]
     Active Substance: FOLIC ACID
     Dosage: UNK
     Route: 064
  3. BACTRIM [Concomitant]
     Active Substance: SULFAMETHOXAZOLE\TRIMETHOPRIM
     Dosage: UNK
     Route: 064
  4. PREZISTA [Concomitant]
     Active Substance: DARUNAVIR ETHANOLATE
     Dosage: UNK
     Route: 064
  5. FUMAFER [Concomitant]
     Active Substance: FERROUS FUMARATE
     Dosage: UNK
     Route: 064
  6. NORVIR [Concomitant]
     Active Substance: RITONAVIR
     Dosage: UNK
     Route: 064
  7. TRUVADA [Concomitant]
     Active Substance: EMTRICITABINE\TENOFOVIR DISOPROXIL FUMARATE
     Dosage: UNK
     Route: 064
  8. DARUNAVIR [Concomitant]
     Active Substance: DARUNAVIR
     Dosage: UNK
     Route: 064

REACTIONS (2)
  - Foetal exposure during pregnancy [Recovered/Resolved]
  - Congenital cytomegalovirus infection [Unknown]

NARRATIVE: CASE EVENT DATE: 2016
